FAERS Safety Report 9391490 (Version 1)
Quarter: 2013Q3

REPORT INFORMATION
  Report Type: Spontaneous
  Country: BR (occurrence: BR)
  Receive Date: 20130709
  Receipt Date: 20130709
  Transmission Date: 20140515
  Serious: Yes (Other)
  Sender: FDA-Public Use
  Company Number: BR-ASTRAZENECA-2013SE50642

PATIENT
  Age: 58 Year
  Sex: Male
  Weight: 75 kg

DRUGS (6)
  1. SELOZOK [Suspect]
     Indication: MYOCARDIAL INFARCTION
     Route: 048
     Dates: start: 20130304, end: 201306
  2. SELOZOK [Suspect]
     Indication: MYOCARDIAL INFARCTION
     Route: 048
     Dates: start: 201306
  3. ALDACTONE [Concomitant]
     Indication: MYOCARDIAL INFARCTION
     Dates: start: 20130304
  4. LOSARTAN [Concomitant]
     Indication: MYOCARDIAL INFARCTION
     Dates: start: 20130304
  5. PLAGREL [Concomitant]
     Indication: MYOCARDIAL INFARCTION
     Dates: start: 20130304
  6. ASA [Concomitant]

REACTIONS (8)
  - Blood pressure decreased [Unknown]
  - Malaise [Not Recovered/Not Resolved]
  - Dyspepsia [Not Recovered/Not Resolved]
  - Nausea [Not Recovered/Not Resolved]
  - Memory impairment [Not Recovered/Not Resolved]
  - Palpitations [Not Recovered/Not Resolved]
  - Somnolence [Not Recovered/Not Resolved]
  - Intentional drug misuse [Not Recovered/Not Resolved]
